FAERS Safety Report 15350128 (Version 2)
Quarter: 2020Q1

REPORT INFORMATION
  Report Type: Spontaneous
  Country: BE (occurrence: BE)
  Receive Date: 20180905
  Receipt Date: 20200129
  Transmission Date: 20200409
  Serious: No
  Sender: FDA-Public Use
  Company Number: PHHY2015BE178182

PATIENT
  Age: 85 Year
  Sex: Female
  Weight: 67.4 kg

DRUGS (6)
  1. PACLITAXEL. [Suspect]
     Active Substance: PACLITAXEL
     Indication: OVARIAN CANCER
     Dosage: 175 MG/M2, TIW (MOST RECENT DOSE PRIOR TO SAE: 10/JUN/2015)
     Route: 042
     Dates: start: 20150522
  2. PACLITAXEL. [Suspect]
     Active Substance: PACLITAXEL
     Dosage: 175 MG/M2, Q3W
     Route: 042
     Dates: start: 20150610
  3. CARBOPLATIN. [Suspect]
     Active Substance: CARBOPLATIN
     Indication: OVARIAN CANCER
     Dosage: 1 OT, Q3W
     Route: 042
     Dates: start: 20150522
  4. CARBOPLATIN. [Suspect]
     Active Substance: CARBOPLATIN
     Dosage: 1 OT, Q3W
     Route: 042
     Dates: start: 20150610
  5. BEVACIZUMAB. [Suspect]
     Active Substance: BEVACIZUMAB
     Indication: OVARIAN CANCER
     Dosage: 1010 MG, Q3W
     Route: 042
     Dates: start: 20150522
  6. BEVACIZUMAB. [Suspect]
     Active Substance: BEVACIZUMAB
     Dosage: 986 MG, Q3W
     Route: 042
     Dates: start: 20150610

REACTIONS (5)
  - Peripheral sensory neuropathy [Not Recovered/Not Resolved]
  - Diarrhoea [Not Recovered/Not Resolved]
  - Hypertension [Not Recovered/Not Resolved]
  - Constipation [Not Recovered/Not Resolved]
  - Nasopharyngitis [Not Recovered/Not Resolved]

NARRATIVE: CASE EVENT DATE: 20150603
